FAERS Safety Report 17596742 (Version 1)
Quarter: 2020Q1

REPORT INFORMATION
  Report Type: Spontaneous
  Country: US (occurrence: US)
  Receive Date: 20200330
  Receipt Date: 20200330
  Transmission Date: 20200409
  Serious: No
  Sender: FDA-Public Use
  Company Number: US-009507513-2003USA001706

PATIENT
  Age: 28 Year
  Sex: Female
  Weight: 139.59 kg

DRUGS (2)
  1. NEXPLANON [Suspect]
     Active Substance: ETONOGESTREL
     Dosage: UNK
     Route: 059
  2. NEXPLANON [Suspect]
     Active Substance: ETONOGESTREL
     Dosage: UNK
     Route: 059
     Dates: start: 20200226, end: 20200302

REACTIONS (2)
  - Device expulsion [Unknown]
  - Device breakage [Unknown]

NARRATIVE: CASE EVENT DATE: 2020
